FAERS Safety Report 17129137 (Version 1)
Quarter: 2019Q4

REPORT INFORMATION
  Report Type: Spontaneous
  Country: CN (occurrence: CN)
  Receive Date: 20191209
  Receipt Date: 20191209
  Transmission Date: 20200122
  Serious: Yes (Other)
  Sender: FDA-Public Use
  Company Number: CN-ASTRAZENECA-2019SF75061

PATIENT
  Age: 26526 Day
  Sex: Male
  Weight: 70 kg

DRUGS (8)
  1. ASPIRIN. [Suspect]
     Active Substance: ASPIRIN
     Indication: COAGULOPATHY
     Route: 048
     Dates: start: 20191113, end: 20191115
  2. FUROSEMIDE. [Concomitant]
     Active Substance: FUROSEMIDE
     Indication: POLYURIA
     Route: 048
     Dates: start: 20191113, end: 20191116
  3. COMPOUND CEREBROPEPTIDE AND GANGLIOSIDE [Concomitant]
     Indication: CEREBRAL INFARCTION
     Route: 041
     Dates: start: 20191113, end: 20191116
  4. TRANEXAMIC ACID. [Concomitant]
     Active Substance: TRANEXAMIC ACID
     Indication: HAEMOSTASIS
     Route: 041
     Dates: start: 20191113, end: 20191116
  5. ETAMSYLATE [Concomitant]
     Active Substance: ETHAMSYLATE
     Indication: HAEMOSTASIS
     Route: 041
     Dates: start: 20191113, end: 20191116
  6. BETALOC ZOK [Suspect]
     Active Substance: METOPROLOL SUCCINATE
     Indication: BLOOD PRESSURE INCREASED
     Route: 048
     Dates: start: 20191113, end: 20191113
  7. CRESTOR [Suspect]
     Active Substance: ROSUVASTATIN CALCIUM
     Indication: HYPOLIPIDAEMIA
     Route: 048
     Dates: start: 20191113, end: 20191116
  8. SPIRONOLACTONE. [Concomitant]
     Active Substance: SPIRONOLACTONE
     Indication: POLYURIA
     Route: 048
     Dates: start: 20191113, end: 20191116

REACTIONS (3)
  - Liver injury [Unknown]
  - Hyperuricaemia [Unknown]
  - Blood urea increased [Unknown]

NARRATIVE: CASE EVENT DATE: 20191115
